FAERS Safety Report 13180479 (Version 2)
Quarter: 2017Q1

REPORT INFORMATION
  Report Type: Spontaneous
  Country: US (occurrence: US)
  Receive Date: 20170202
  Receipt Date: 20170302
  Transmission Date: 20170428
  Serious: Yes (Other)
  Sender: FDA-Public Use
  Company Number: US-BAYER-2017-019957

PATIENT
  Age: 53 Year
  Sex: Male

DRUGS (2)
  1. CIPROFLOXACIN. [Suspect]
     Active Substance: CIPROFLOXACIN
     Indication: PROSTATE INFECTION
     Dosage: 500 MG, UNK
     Dates: start: 20121214, end: 20141215
  2. CIPROFLOXACIN. [Suspect]
     Active Substance: CIPROFLOXACIN
     Indication: PROSTATE INFECTION
     Dosage: 500 MG, UNK
     Dates: start: 20121208, end: 20121214

REACTIONS (3)
  - Neuropathy peripheral [None]
  - Depression [None]
  - Insomnia [None]

NARRATIVE: CASE EVENT DATE: 201212
